FAERS Safety Report 23638089 (Version 1)
Quarter: 2024Q1

REPORT INFORMATION
  Report Type: Spontaneous
  Country: CO (occurrence: CO)
  Receive Date: 20240315
  Receipt Date: 20240315
  Transmission Date: 20240410
  Serious: Yes (Hospitalization)
  Sender: FDA-Public Use
  Company Number: CO-BAYER-2024A037890

PATIENT
  Age: 77 Year
  Sex: Male

DRUGS (2)
  1. NUBEQA [Suspect]
     Active Substance: DAROLUTAMIDE
     Indication: Hormone-dependent prostate cancer
     Dosage: UNK
     Dates: start: 20240223
  2. ROSUVASTATIN [Suspect]
     Active Substance: ROSUVASTATIN
     Dosage: UNK

REACTIONS (7)
  - Diarrhoea [None]
  - Dehydration [Recovered/Resolved]
  - Renal failure [None]
  - Asthenia [Not Recovered/Not Resolved]
  - Blood creatine phosphokinase increased [None]
  - Rhabdomyolysis [None]
  - Drug interaction [None]
